FAERS Safety Report 19200757 (Version 1)
Quarter: 2021Q2

REPORT INFORMATION
  Report Type: Spontaneous
  Country: US (occurrence: US)
  Receive Date: 20210430
  Receipt Date: 20210430
  Transmission Date: 20210717
  Serious: Yes (Life-Threatening, Hospitalization)
  Sender: FDA-Public Use
  Company Number: US-MYLANLABS-2021M1025321

PATIENT
  Age: 70 Year
  Sex: Male

DRUGS (15)
  1. HYDROCORTISONE. [Suspect]
     Active Substance: HYDROCORTISONE
     Indication: MYXOEDEMA COMA
     Dosage: 100 MILLIGRAM
     Route: 042
  2. NOREPINEPHRINE. [Suspect]
     Active Substance: NOREPINEPHRINE
     Indication: CARDIOGENIC SHOCK
     Dosage: INITIAL DOSE NOT STATED
     Route: 065
  3. EPINEPHRINE. [Suspect]
     Active Substance: EPINEPHRINE
     Indication: SINUS BRADYCARDIA
     Dosage: 100 MICROGRAM, QMINUTE
     Route: 065
  4. PHENYLEPHRINE [Suspect]
     Active Substance: PHENYLEPHRINE HYDROCHLORIDE
     Indication: CARDIOGENIC SHOCK
     Dosage: 200 MICROGRAM, QMINUTE
     Route: 065
  5. EPINEPHRINE. [Suspect]
     Active Substance: EPINEPHRINE
     Indication: CARDIOGENIC SHOCK
     Dosage: 0.5 MILLIGRAM
     Route: 042
  6. LEVOTHYROXINE. [Concomitant]
     Active Substance: LEVOTHYROXINE
     Indication: HYPOTHYROIDISM
     Dosage: 25 MICROGRAM, QD
     Route: 048
  7. DOPAMINE [Suspect]
     Active Substance: DOPAMINE HYDROCHLORIDE
     Indication: CARDIOGENIC SHOCK
     Dosage: 20 MICROGRAM/KILOGRAM, QMINUTE
     Route: 065
  8. MAGNESIUM [Suspect]
     Active Substance: MAGNESIUM
     Indication: CARDIAC ARREST
  9. LIOTHYRONINE [Suspect]
     Active Substance: LIOTHYRONINE
     Indication: MYXOEDEMA COMA
     Dosage: 20 MICROGRAM
     Route: 042
  10. CARVEDILOL. [Concomitant]
     Active Substance: CARVEDILOL
     Indication: ATRIAL FIBRILLATION
     Dosage: 12.5 MILLIGRAM, BID
     Route: 048
  11. NOREPINEPHRINE. [Suspect]
     Active Substance: NOREPINEPHRINE
     Indication: SINUS BRADYCARDIA
     Dosage: 200 MICROGRAM, QMINUTE
     Route: 065
  12. MAGNESIUM [Suspect]
     Active Substance: MAGNESIUM
     Indication: TORSADE DE POINTES
     Dosage: 2 GRAM
     Route: 042
  13. ATROPINE. [Suspect]
     Active Substance: ATROPINE
     Indication: SINUS BRADYCARDIA
     Dosage: 0.5 MILLIGRAM,1 DOSE
     Route: 042
  14. DOPAMINE [Concomitant]
     Active Substance: DOPAMINE HYDROCHLORIDE
     Indication: SINUS BRADYCARDIA
     Dosage: DOPAMINE DRIP
     Route: 065
  15. LEVOTHYROXINE. [Suspect]
     Active Substance: LEVOTHYROXINE
     Indication: MYXOEDEMA COMA
     Dosage: 400 MICROGRAM
     Route: 042

REACTIONS (1)
  - Drug ineffective [Unknown]
